FAERS Safety Report 5860392-3 (Version None)
Quarter: 2008Q3

REPORT INFORMATION
  Report Type: 
  Country: None (occurrence: None)
  Receive Date: 20080827
  Receipt Date: 20080815
  Transmission Date: 20090109
  Serious: Yes (Other)
  Sender: FDA-Public Use
  Company Number: US-JNJCH-2008020278

PATIENT
  Age: 73 Year
  Sex: Male
  Weight: 74.8 kg

DRUGS (7)
  1. NEOSPORIN [Suspect]
     Indication: THERMAL BURN
     Dosage: TEXT:JUST A DAB 2X PER DAY
     Route: 061
     Dates: start: 20080525, end: 20080602
  2. ACETYLSALICYLIC ACID SRT [Concomitant]
     Indication: ANTICOAGULANT THERAPY
     Dosage: TEXT:325MG/ 1X PER DAY
     Route: 048
  3. AMLODIPINE [Concomitant]
     Indication: HYPERTENSION
     Dosage: TEXT:5MG/ 1X PER DAY
     Route: 048
  4. SIMVASTATIN [Concomitant]
     Indication: BLOOD CHOLESTEROL INCREASED
     Dosage: TEXT:20MG/ 1X PER DAY
     Route: 048
  5. TERAZOSIN HCL [Concomitant]
     Indication: PROSTATOMEGALY
     Dosage: TEXT:1MG/ 1X PER DAY
     Route: 048
  6. POTASSIUM CHLORIDE [Concomitant]
     Indication: MUSCLE SPASMS
     Dosage: TEXT:99MG /1XPER DAY
     Route: 048
  7. MULTI-VITAMINS [Concomitant]
     Indication: VITAMIN SUPPLEMENTATION
     Dosage: TEXT:1 TABLET / 1XPER DAY
     Route: 048

REACTIONS (10)
  - APPLICATION SITE DISCHARGE [None]
  - CONDITION AGGRAVATED [None]
  - DRY SKIN [None]
  - INFLAMMATION [None]
  - LOCAL SWELLING [None]
  - OEDEMA PERIPHERAL [None]
  - PIGMENTATION DISORDER [None]
  - PRURITUS [None]
  - SWELLING FACE [None]
  - URTICARIA [None]
